FAERS Safety Report 9009440 (Version 1)
Quarter: 2013Q1

REPORT INFORMATION
  Report Type: Spontaneous
  Country: US (occurrence: US)
  Receive Date: 20130112
  Receipt Date: 20130112
  Transmission Date: 20140127
  Serious: Yes (Hospitalization)
  Sender: FDA-Public Use
  Company Number: US-009507513-1301USA001841

PATIENT
  Age: 36 Year
  Sex: Male

DRUGS (6)
  1. SINGULAIR [Suspect]
     Route: 048
  2. NEURONTIN [Suspect]
     Route: 048
  3. MORPHINE [Suspect]
     Route: 048
  4. RIVOTRIL [Suspect]
     Route: 048
  5. PREVISCAN [Concomitant]
     Route: 048
  6. SERETIDE [Suspect]
     Dosage: RESPIRATORY (INHALATION)

REACTIONS (4)
  - Purpura [Unknown]
  - International normalised ratio increased [Unknown]
  - Infection [Unknown]
  - Activated partial thromboplastin time prolonged [Unknown]
